FAERS Safety Report 22292525 (Version 1)
Quarter: 2023Q2

REPORT INFORMATION
  Report Type: Spontaneous
  Country: DE (occurrence: DE)
  Receive Date: 20230508
  Receipt Date: 20230508
  Transmission Date: 20230721
  Serious: Yes (Hospitalization)
  Sender: FDA-Public Use
  Company Number: None

PATIENT
  Sex: Female

DRUGS (1)
  1. HYDROXYUREA [Suspect]
     Active Substance: HYDROXYUREA
     Dates: start: 201907

REACTIONS (3)
  - Emotional distress [Unknown]
  - Ulcer [Unknown]
  - Skin ulcer [Unknown]

NARRATIVE: CASE EVENT DATE: 20221101
